FAERS Safety Report 10211095 (Version 1)
Quarter: 2014Q2

REPORT INFORMATION
  Report Type: Spontaneous
  Country: US (occurrence: None)
  Receive Date: 20140530
  Receipt Date: 20140530
  Transmission Date: 20141212
  Serious: Yes (Disabling)
  Sender: FDA-Public Use
  Company Number: None

PATIENT
  Sex: Male

DRUGS (1)
  1. DIOVAN [Suspect]
     Indication: HYPERTENSION
     Dosage: 1 PILL, ONCE DAILY, TAKEN BY MOUTH
     Route: 048
     Dates: start: 20110101, end: 20140401

REACTIONS (7)
  - Muscle atrophy [None]
  - Muscular weakness [None]
  - Back pain [None]
  - Injury [None]
  - Somnolence [None]
  - Blood cholesterol increased [None]
  - Muscle strain [None]
